FAERS Safety Report 8609211-2 (Version None)
Quarter: 2012Q3

REPORT INFORMATION
  Report Type: 
  Country: None (occurrence: None)
  Receive Date: 20120821
  Receipt Date: 20120807
  Transmission Date: 20120928
  Serious: No
  Sender: FDA-Public Use
  Company Number: US-BAYER-2012-074745

PATIENT
  Sex: Female

DRUGS (2)
  1. BEYAZ [Suspect]
     Indication: CONTRACEPTION
     Dosage: 3MG/0.02MG/0.451MG/0.451
     Route: 048
     Dates: start: 20120601
  2. BEYAZ [Suspect]
     Indication: GENITAL HAEMORRHAGE

REACTIONS (5)
  - ABNORMAL WEIGHT GAIN [None]
  - ABDOMINAL PAIN [None]
  - ACNE [None]
  - DRY MOUTH [None]
  - METRORRHAGIA [None]
